FAERS Safety Report 8399243-4 (Version None)
Quarter: 2012Q2

REPORT INFORMATION
  Report Type: 
  Country: None (occurrence: None)
  Receive Date: 20120531
  Receipt Date: 20120523
  Transmission Date: 20120825
  Serious: Yes (Congenital Anomaly)
  Sender: FDA-Public Use
  Company Number: US-GLAXOSMITHKLINE-A0979521A

PATIENT
  Sex: Male

DRUGS (17)
  1. DEMEROL [Concomitant]
     Route: 064
  2. PRILOSEC [Concomitant]
     Route: 064
  3. SEROQUEL [Concomitant]
     Route: 064
  4. PAXIL [Suspect]
     Indication: PRODUCT USED FOR UNKNOWN INDICATION
     Route: 064
  5. MAGNESIUM SULFATE [Concomitant]
     Route: 064
  6. SINEMET [Concomitant]
     Route: 064
  7. ZANAFLEX [Concomitant]
     Route: 064
  8. VIOXX [Concomitant]
     Route: 064
  9. AMBIEN [Concomitant]
     Route: 064
  10. KLONOPIN [Concomitant]
     Route: 064
  11. ADDERALL 5 [Concomitant]
     Route: 064
  12. MULTI-VITAMINS [Concomitant]
     Route: 064
  13. AMERGE [Concomitant]
     Route: 064
  14. AXID [Concomitant]
     Route: 064
  15. RELAFEN [Concomitant]
     Route: 064
  16. BRETHINE [Concomitant]
     Route: 064
  17. DOXEPIN [Concomitant]
     Route: 064

REACTIONS (3)
  - ENCEPHALOPATHY [None]
  - CEREBRAL PALSY [None]
  - FOETAL EXPOSURE DURING PREGNANCY [None]
